FAERS Safety Report 9410984 (Version 1)
Quarter: 2013Q3

REPORT INFORMATION
  Report Type: Spontaneous
  Country: None (occurrence: US)
  Receive Date: 20130719
  Receipt Date: 20130719
  Transmission Date: 20140515
  Serious: Yes (Hospitalization)
  Sender: FDA-Public Use
  Company Number: US-TMC-CABO-13002835

PATIENT
  Sex: 0

DRUGS (5)
  1. COMETRIQ [Suspect]
     Indication: THYROID CANCER
     Dosage: 140 MG, QD
     Route: 048
     Dates: start: 20130524, end: 20130604
  2. SYNTHROID [Concomitant]
  3. CALCITROL [Concomitant]
  4. FOSAMAX [Concomitant]
  5. NEXAVAR [Concomitant]

REACTIONS (6)
  - Posterior reversible encephalopathy syndrome [Recovering/Resolving]
  - Loss of consciousness [Recovered/Resolved]
  - Disorientation [Recovering/Resolving]
  - Blood pressure increased [Recovering/Resolving]
  - Headache [Recovered/Resolved]
  - Asthenia [Recovering/Resolving]
